FAERS Safety Report 5876481-3 (Version None)
Quarter: 2008Q3

REPORT INFORMATION
  Report Type: 
  Country: None (occurrence: None)
  Receive Date: 20080910
  Receipt Date: 20080905
  Transmission Date: 20090109
  Serious: Yes (Hospitalization)
  Sender: FDA-Public Use
  Company Number: A0746120A

PATIENT
  Age: 45 Year
  Sex: Female

DRUGS (2)
  1. VALTREX [Suspect]
     Indication: EPSTEIN-BARR VIRUS INFECTION
     Dosage: 1000MG TWICE PER DAY
     Route: 048
     Dates: start: 20080717, end: 20080808
  2. SLEEPING PILL [Concomitant]

REACTIONS (10)
  - BLOOD VISCOSITY INCREASED [None]
  - CEREBROVASCULAR ACCIDENT [None]
  - DISABILITY [None]
  - JOINT RANGE OF MOTION DECREASED [None]
  - JOINT SWELLING [None]
  - OEDEMA PERIPHERAL [None]
  - RED BLOOD CELL COUNT DECREASED [None]
  - SWELLING FACE [None]
  - SYSTEMIC LUPUS ERYTHEMATOSUS [None]
  - WHITE BLOOD CELL COUNT DECREASED [None]
